FAERS Safety Report 5532908-8 (Version None)
Quarter: 2007Q4

REPORT INFORMATION
  Report Type: 
  Country: None (occurrence: None)
  Receive Date: 20071119
  Receipt Date: 20071005
  Transmission Date: 20080405
  Serious: No
  Sender: FDA-Public Use
  Company Number: TPA2007A02055

PATIENT
  Age: 4 Decade
  Sex: Female

DRUGS (3)
  1. ROZEREM [Suspect]
     Indication: INITIAL INSOMNIA
     Dosage: 8 MG, QHS, PER ORAL
     Route: 048
  2. ROZEREM [Suspect]
     Indication: MIDDLE INSOMNIA
     Dosage: 8 MG, QHS, PER ORAL
     Route: 048
  3. BENADRYL [Concomitant]

REACTIONS (4)
  - MIDDLE INSOMNIA [None]
  - NIGHTMARE [None]
  - PARANOIA [None]
  - POOR QUALITY SLEEP [None]
